FAERS Safety Report 9222478 (Version 3)
Quarter: 2016Q2

REPORT INFORMATION
  Report Type: Report from Study
  Country: US (occurrence: US)
  Receive Date: 20130410
  Receipt Date: 20160616
  Transmission Date: 20160815
  Serious: Yes (Hospitalization, Other)
  Sender: FDA-Public Use
  Company Number: US-SANOFI-AVENTIS-2013SA035914

PATIENT
  Age: 37 Year
  Sex: Female

DRUGS (2)
  1. AUBAGIO [Suspect]
     Active Substance: TERIFLUNOMIDE
     Indication: MULTIPLE SCLEROSIS
     Dosage: START DATE: ABOUT 20 DAYS AGO.
     Route: 048
     Dates: start: 20130514
  2. ZOLOFT [Concomitant]
     Active Substance: SERTRALINE HYDROCHLORIDE

REACTIONS (16)
  - Head injury [Unknown]
  - Multiple sclerosis relapse [Unknown]
  - Hypoaesthesia [Unknown]
  - Suicidal ideation [Recovered/Resolved]
  - Blood sodium increased [Unknown]
  - Hypertension [Unknown]
  - Vision blurred [Not Recovered/Not Resolved]
  - Central nervous system lesion [Unknown]
  - Nasal congestion [Not Recovered/Not Resolved]
  - Loss of consciousness [Unknown]
  - Visual impairment [Recovered/Resolved]
  - Body temperature increased [Not Recovered/Not Resolved]
  - Pain [Unknown]
  - Somnolence [Unknown]
  - Depression [Not Recovered/Not Resolved]
  - Nasopharyngitis [Not Recovered/Not Resolved]

NARRATIVE: CASE EVENT DATE: 2016
